FAERS Safety Report 10503670 (Version 1)
Quarter: 2014Q4

REPORT INFORMATION
  Report Type: Spontaneous
  Country: US (occurrence: None)
  Receive Date: 20141007
  Receipt Date: 20141007
  Transmission Date: 20150528
  Serious: Yes (Hospitalization)
  Sender: FDA-Public Use
  Company Number: None

PATIENT
  Age: 65 Year
  Sex: Male
  Weight: 86.5 kg

DRUGS (1)
  1. PRAZOSIN [Suspect]
     Active Substance: PRAZOSIN
     Indication: POST-TRAUMATIC STRESS DISORDER
     Route: 048
     Dates: start: 20131028, end: 20131106

REACTIONS (1)
  - Rash [None]

NARRATIVE: CASE EVENT DATE: 20131028
